FAERS Safety Report 18855279 (Version 1)
Quarter: 2021Q1

REPORT INFORMATION
  Report Type: Report from Study
  Country: US (occurrence: US)
  Receive Date: 20210205
  Receipt Date: 20210205
  Transmission Date: 20210420
  Serious: Yes (Disabling, Other)
  Sender: FDA-Public Use
  Company Number: US-BRISTOL-MYERS SQUIBB COMPANY-BMS-2021-011408

PATIENT
  Age: 63 Year
  Sex: Female
  Weight: 107 kg

DRUGS (3)
  1. NIVOLUMAB [Suspect]
     Active Substance: NIVOLUMAB
     Indication: METASTATIC NEOPLASM
     Dosage: 480 MILLIGRAM
     Route: 042
     Dates: start: 20201208
  2. ZITHROMAX [Concomitant]
     Active Substance: AZITHROMYCIN DIHYDRATE
     Indication: NASAL CONGESTION
     Dosage: UNK FOR 5 DAYS
     Route: 065
     Dates: start: 20210103
  3. LUCITANIB. [Suspect]
     Active Substance: LUCITANIB
     Indication: METASTATIC NEOPLASM
     Dosage: 6 MILLIGRAM, QD (TABLET)
     Route: 048
     Dates: start: 20201208

REACTIONS (1)
  - Sjogren^s syndrome [Recovering/Resolving]

NARRATIVE: CASE EVENT DATE: 20210126
